FAERS Safety Report 8504335-2 (Version None)
Quarter: 2012Q3

REPORT INFORMATION
  Report Type: 
  Country: None (occurrence: None)
  Receive Date: 20120711
  Receipt Date: 20120706
  Transmission Date: 20120928
  Serious: Yes (Other)
  Sender: FDA-Public Use
  Company Number: PHHY2012IE058127

PATIENT
  Age: 55 Year

DRUGS (4)
  1. ADALIMUMAB [Suspect]
     Dosage: 40 MG, QW
     Dates: start: 20080201
  2. METHOTREXATE [Suspect]
     Indication: PSORIATIC ARTHROPATHY
  3. ETANERCEPT [Suspect]
     Dosage: 50 MG, QW2
     Dates: start: 20041001
  4. PSORALENS PLUS ULTRAVIOLET [Concomitant]
     Indication: PSORIATIC ARTHROPATHY

REACTIONS (3)
  - LYMPHADENOPATHY [None]
  - NASOPHARYNGEAL CANCER [None]
  - PSORIASIS [None]
